FAERS Safety Report 7125553-4 (Version None)
Quarter: 2010Q4

REPORT INFORMATION
  Report Type: 
  Country: None (occurrence: None)
  Receive Date: 20101129
  Receipt Date: 20100313
  Transmission Date: 20110411
  Serious: Yes (Other)
  Sender: FDA-Public Use
  Company Number: AU-ROCHE-741698

PATIENT

DRUGS (2)
  1. ACTEMRA [Suspect]
     Route: 065
  2. FOLFOX REGIMEN [Concomitant]

REACTIONS (1)
  - PULMONARY OEDEMA [None]
